FAERS Safety Report 4288968-8 (Version None)
Quarter: 2004Q1

REPORT INFORMATION
  Report Type: 
  Country: None (occurrence: None)
  Receive Date: 20040206
  Receipt Date: 20040122
  Transmission Date: 20041129
  Serious: Yes (Other)
  Sender: FDA-Public Use
  Company Number: S04-USA-00279-01

PATIENT
  Age: 41 Year
  Sex: Male

DRUGS (4)
  1. LEXAPRO [Suspect]
     Indication: DEPRESSION
     Dosage: 10 MG QD PO
     Route: 048
     Dates: start: 20040102
  2. VICODIN [Concomitant]
  3. TYLENOL W/ CODEINE NO. 4 [Concomitant]
  4. RHINOCORT [Concomitant]

REACTIONS (1)
  - DRUG SCREEN POSITIVE [None]
